FAERS Safety Report 8466489-6 (Version None)
Quarter: 2012Q2

REPORT INFORMATION
  Report Type: 
  Country: None (occurrence: None)
  Receive Date: 20120620
  Receipt Date: 20120620
  Transmission Date: 20120825
  Serious: Yes (Disabling)
  Sender: FDA-Public Use
  Company Number: None

PATIENT
  Sex: Female
  Weight: 57.6068 kg

DRUGS (2)
  1. LATUDA [Suspect]
     Indication: SCHIZOPHRENIA
     Dosage: 40 MG 1 TIME A DAY PO; 40 MG 2 DAYS, THN 80 MG 1 TIME A DAY PO
     Route: 048
     Dates: start: 20120519, end: 20120602
  2. LATUDA [Suspect]
     Indication: SCHIZOPHRENIA
     Dosage: 40 MG 1 TIME A DAY PO; 40 MG 2 DAYS, THN 80 MG 1 TIME A DAY PO
     Route: 048
     Dates: start: 20120427, end: 20120501

REACTIONS (7)
  - ABNORMAL SENSATION IN EYE [None]
  - URTICARIA [None]
  - GRUNTING [None]
  - EYE MOVEMENT DISORDER [None]
  - BALANCE DISORDER [None]
  - FALL [None]
  - DRUG INEFFECTIVE [None]
